FAERS Safety Report 7248434-4 (Version None)
Quarter: 2011Q1

REPORT INFORMATION
  Report Type: 
  Country: None (occurrence: None)
  Receive Date: 20110127
  Receipt Date: 20110126
  Transmission Date: 20110831
  Serious: Yes (Life-Threatening, Hospitalization)
  Sender: FDA-Public Use
  Company Number: US-B.I. PHARMACEUTICALS,INC./RIDGEFIELD-2010-BP-14809BP

PATIENT
  Sex: Female
  Weight: 59.42 kg

DRUGS (11)
  1. LASIX [Concomitant]
  2. SYNTHROID [Concomitant]
  3. CYMBALTA [Concomitant]
  4. PROTONIX [Concomitant]
     Dosage: 40 MG
  5. ASA [Concomitant]
     Dosage: 325 MG
  6. LOVASTATIN [Concomitant]
  7. LISINOPRIL [Concomitant]
  8. ALDACTONE [Concomitant]
  9. DIGOXIN [Concomitant]
  10. PRADAXA [Suspect]
     Indication: ATRIAL FIBRILLATION
     Dosage: 300 MG
     Dates: start: 20101124, end: 20101206
  11. DILTIAZEM [Concomitant]

REACTIONS (5)
  - ANAEMIA [None]
  - IRON DEFICIENCY [None]
  - GASTROINTESTINAL HAEMORRHAGE [None]
  - MELAENA [None]
  - ASTHENIA [None]
